FAERS Safety Report 8509710-8 (Version None)
Quarter: 2012Q2

REPORT INFORMATION
  Report Type: 
  Country: None (occurrence: None)
  Receive Date: 20120405
  Receipt Date: 20090708
  Transmission Date: 20120825
  Serious: Yes (Other)
  Sender: FDA-Public Use
  Company Number: PHEH2009US04470

PATIENT
  Age: 59 Year
  Sex: Female
  Weight: 55.9 kg

DRUGS (5)
  1. RECLAST [Suspect]
     Indication: OSTEOPENIA
     Dosage: 5 MG/100 ML YEARLY, INFUSION
     Dates: start: 20090327, end: 20090327
  2. PHENOBARBITAL TAB [Concomitant]
  3. CELEBREX [Concomitant]
  4. ACTIVELLA [Concomitant]
  5. VALTREX [Concomitant]

REACTIONS (11)
  - SENSITIVITY OF TEETH [None]
  - PAIN [None]
  - INSOMNIA [None]
  - PAIN IN JAW [None]
  - VERTIGO [None]
  - HEADACHE [None]
  - PYREXIA [None]
  - ABDOMINAL PAIN UPPER [None]
  - ARTHRALGIA [None]
  - BONE PAIN [None]
  - INFLUENZA LIKE ILLNESS [None]
